FAERS Safety Report 9976043 (Version 1)
Quarter: 2014Q1

REPORT INFORMATION
  Report Type: Spontaneous
  Country: FR (occurrence: FR)
  Receive Date: 20140306
  Receipt Date: 20140306
  Transmission Date: 20141002
  Serious: Yes (Death)
  Sender: FDA-Public Use
  Company Number: FR-LUNDBECK-DKLU1097967

PATIENT
  Age: 66 Year
  Sex: Male

DRUGS (15)
  1. URBANYL [Suspect]
     Indication: EPILEPSY
     Route: 048
     Dates: start: 20131219, end: 20140112
  2. OFLOCET [Suspect]
     Indication: SEPSIS
     Route: 048
     Dates: start: 20131224, end: 20140109
  3. KEPPRA [Suspect]
     Indication: EPILEPSY
     Route: 050
     Dates: start: 20131214, end: 20131227
  4. KEPPRA [Suspect]
     Route: 048
     Dates: start: 20131227, end: 20140112
  5. ROCEPHINE [Suspect]
     Indication: SEPSIS
     Route: 050
     Dates: start: 20131227, end: 20140108
  6. MOPRAL [Suspect]
     Indication: PRODUCT USED FOR UNKNOWN INDICATION
     Route: 048
     Dates: start: 20131221, end: 20140112
  7. TRILEPTAL [Suspect]
     Indication: EPILEPSY
     Route: 048
     Dates: start: 20131214, end: 20140109
  8. ZELITREX [Suspect]
     Indication: SEPSIS
     Route: 048
     Dates: start: 20131228, end: 20140109
  9. DI-HYDAN [Concomitant]
     Indication: EPILEPSY
     Dates: start: 20131212
  10. RIVOTRIL [Concomitant]
     Indication: EPILEPSY
     Dates: start: 20131213, end: 20131220
  11. SOLUMEDROL [Concomitant]
     Indication: PRODUCT USED FOR UNKNOWN INDICATION
     Dates: start: 20131213
  12. SOLUPRED [Concomitant]
     Indication: PRODUCT USED FOR UNKNOWN INDICATION
     Dates: start: 20140109
  13. AUGMENTIN [Concomitant]
     Indication: SEPSIS
     Dates: start: 20131222, end: 20131227
  14. BRICANYL [Concomitant]
     Indication: SEPSIS
     Dates: start: 20131219, end: 20140109
  15. ATROVENT [Concomitant]
     Indication: SEPSIS
     Dates: start: 20131219, end: 20140109

REACTIONS (1)
  - Toxic epidermal necrolysis [Fatal]
